FAERS Safety Report 15163545 (Version 1)
Quarter: 2018Q3

REPORT INFORMATION
  Report Type: Spontaneous
  Country: US (occurrence: US)
  Receive Date: 20180719
  Receipt Date: 20180719
  Transmission Date: 20181010
  Serious: Yes (Other)
  Sender: FDA-Public Use
  Company Number: US-ROCHE-2156201

PATIENT
  Age: 43 Year
  Sex: Female
  Weight: 89.89 kg

DRUGS (1)
  1. XOLAIR [Suspect]
     Active Substance: OMALIZUMAB
     Indication: ASTHMA
     Dosage: 150 MG EACH ARM ;ONGOING: YES
     Route: 065
     Dates: start: 201708

REACTIONS (6)
  - Rotator cuff syndrome [Not Recovered/Not Resolved]
  - Muscle spasms [Recovered/Resolved]
  - Limb mass [Not Recovered/Not Resolved]
  - Fracture [Not Recovered/Not Resolved]
  - Arthralgia [Not Recovered/Not Resolved]
  - Musculoskeletal pain [Not Recovered/Not Resolved]

NARRATIVE: CASE EVENT DATE: 201708
